FAERS Safety Report 9216081 (Version 1)
Quarter: 2013Q2

REPORT INFORMATION
  Report Type: Spontaneous
  Country: ZA (occurrence: None)
  Receive Date: 20130404
  Receipt Date: 20130404
  Transmission Date: 20140414
  Serious: Yes (Hospitalization)
  Sender: FDA-Public Use
  Company Number: SYM-2013-02145

PATIENT
  Age: 63 Year
  Sex: Male

DRUGS (4)
  1. 5-FU [Suspect]
     Indication: COLORECTAL CANCER METASTATIC
     Route: 040
     Dates: start: 20121205, end: 20121205
  2. AFLIBERCEPT [Suspect]
     Route: 041
     Dates: start: 20121205, end: 20121205
  3. IRINOTECAN [Suspect]
     Route: 041
     Dates: start: 20121205, end: 20121205
  4. LEUCOVORIN [Suspect]
     Route: 041
     Dates: start: 20121205, end: 20121205

REACTIONS (3)
  - Change of bowel habit [None]
  - Anastomotic ulcer [None]
  - Faeces discoloured [None]
